FAERS Safety Report 20626321 (Version 3)
Quarter: 2022Q2

REPORT INFORMATION
  Report Type: Spontaneous
  Country: US (occurrence: US)
  Receive Date: 20220323
  Receipt Date: 20220505
  Transmission Date: 20220721
  Serious: No
  Sender: FDA-Public Use
  Company Number: US-GLAXOSMITHKLINE-US2022AMR051514

PATIENT
  Age: 53 Year
  Sex: Female

DRUGS (1)
  1. ZEJULA [Suspect]
     Active Substance: NIRAPARIB
     Indication: Ovarian cancer
     Dosage: 200 MG, QD
     Dates: start: 20220307

REACTIONS (4)
  - Constipation [Not Recovered/Not Resolved]
  - Platelet count decreased [Unknown]
  - Aphthous ulcer [Unknown]
  - Tongue ulceration [Unknown]

NARRATIVE: CASE EVENT DATE: 20220301
